FAERS Safety Report 25725535 (Version 1)
Quarter: 2025Q3

REPORT INFORMATION
  Report Type: Spontaneous
  Country: TH (occurrence: TH)
  Receive Date: 20250826
  Receipt Date: 20250826
  Transmission Date: 20251020
  Serious: Yes (Other)
  Sender: ROCHE
  Company Number: TH-ROCHE-10000366849

PATIENT
  Age: 54 Year
  Sex: Female

DRUGS (2)
  1. PERTUZUMAB [Suspect]
     Active Substance: PERTUZUMAB
     Indication: Breast cancer
     Route: 042
  2. TRASTUZUMAB [Suspect]
     Active Substance: TRASTUZUMAB
     Indication: Breast cancer
     Route: 042

REACTIONS (6)
  - Cardiac failure [Unknown]
  - Ejection fraction decreased [Unknown]
  - Pulmonary fibrosis [Unknown]
  - Uterine enlargement [Unknown]
  - Arthritis [Unknown]
  - Pulmonary mass [Unknown]
